FAERS Safety Report 5689137-7 (Version None)
Quarter: 2008Q1

REPORT INFORMATION
  Report Type: 
  Country: None (occurrence: None)
  Receive Date: 20080331
  Receipt Date: 19891101
  Transmission Date: 20080703
  Serious: Yes (Death, Life-Threatening, Other)
  Sender: FDA-Public Use
  Company Number: CH-ROCHE-890100566001

PATIENT
  Age: 57 Year
  Sex: Male

DRUGS (2)
  1. VALIUM [Suspect]
     Route: 048
     Dates: end: 19891125
  2. ROHYPNOL [Suspect]
     Route: 048
     Dates: end: 19891125

REACTIONS (5)
  - DEATH [None]
  - DEPRESSION [None]
  - INSOMNIA [None]
  - SUICIDAL IDEATION [None]
  - WITHDRAWAL SYNDROME [None]
